FAERS Safety Report 5829304-2 (Version None)
Quarter: 2008Q3

REPORT INFORMATION
  Report Type: 
  Country: None (occurrence: None)
  Receive Date: 20080731
  Receipt Date: 20080730
  Transmission Date: 20090109
  Serious: Yes (Hospitalization)
  Sender: FDA-Public Use
  Company Number: DE-BOEHRINGER INGELHEIM GMBH, GERMANY-2008-DE-04145DE

PATIENT
  Sex: Female
  Weight: 50 kg

DRUGS (1)
  1. MICARDIS HCT [Suspect]
     Dosage: 80 MG TELMISARTAN / 12,5 MG HYDROCHLOROTHIAZIDE
     Route: 048

REACTIONS (5)
  - DRUG ABUSE [None]
  - OVERDOSE [None]
  - POLYURIA [None]
  - SUICIDE ATTEMPT [None]
  - TACHYCARDIA [None]
